FAERS Safety Report 20579180 (Version 1)
Quarter: 2022Q1

REPORT INFORMATION
  Report Type: Spontaneous
  Country: US (occurrence: None)
  Receive Date: 20220310
  Receipt Date: 20220310
  Transmission Date: 20220424
  Serious: Yes (Hospitalization)
  Sender: FDA-Public Use
  Company Number: None

PATIENT
  Age: 32 Year
  Sex: Male
  Weight: 123 kg

DRUGS (1)
  1. LAMOTRIGINE [Suspect]
     Active Substance: LAMOTRIGINE
     Indication: Seizure
     Dosage: FREQUENCY : TWICE A DAY;?
     Route: 048
     Dates: start: 20141113, end: 20200716

REACTIONS (4)
  - Stevens-Johnson syndrome [None]
  - Skin exfoliation [None]
  - Product availability issue [None]
  - Therapy interrupted [None]

NARRATIVE: CASE EVENT DATE: 20200715
